FAERS Safety Report 25632408 (Version 1)
Quarter: 2025Q3

REPORT INFORMATION
  Report Type: Spontaneous
  Country: US (occurrence: US)
  Receive Date: 20250801
  Receipt Date: 20250801
  Transmission Date: 20251020
  Serious: No
  Sender: VERTEX
  Company Number: US-VERTEX PHARMACEUTICALS-2025-012332

PATIENT

DRUGS (1)
  1. ALYFTREK [Suspect]
     Active Substance: DEUTIVACAFTOR\TEZACAFTOR\VANZACAFTOR
     Indication: Cystic fibrosis
     Dosage: ALYFTREK (VANZACAFTOR/ TEZACAFTOR/DEUTIVACAFTOR)
     Route: 048

REACTIONS (3)
  - Brain fog [Unknown]
  - Gastrointestinal disorder [Unknown]
  - Depressed mood [Unknown]
